FAERS Safety Report 5782140-8 (Version None)
Quarter: 2008Q2

REPORT INFORMATION
  Report Type: 
  Country: None (occurrence: None)
  Receive Date: 20080623
  Receipt Date: 20080616
  Transmission Date: 20081010
  Serious: Yes (Other)
  Sender: FDA-Public Use
  Company Number: US-AMGEN-QUU287708

PATIENT
  Sex: Female

DRUGS (2)
  1. ENBREL [Suspect]
     Indication: RHEUMATOID ARTHRITIS
     Route: 058
     Dates: start: 20050615
  2. PLAQUENIL [Concomitant]
     Route: 048

REACTIONS (3)
  - HERPES SIMPLEX [None]
  - LUNG NEOPLASM [None]
  - UPPER RESPIRATORY TRACT INFECTION [None]
